FAERS Safety Report 4283067-3 (Version None)
Quarter: 2004Q1

REPORT INFORMATION
  Report Type: 
  Country: None (occurrence: None)
  Receive Date: 20040129
  Receipt Date: 20030603
  Transmission Date: 20041129
  Serious: No
  Sender: FDA-Public Use
  Company Number: 03H-163-0232559-00

PATIENT

DRUGS (1)
  1. FENTANYL CITRATE [Suspect]
     Dosage: 2CC
     Dates: start: 20030602

REACTIONS (2)
  - PO2 DECREASED [None]
  - RESPIRATORY DISORDER [None]
